FAERS Safety Report 5299117-1 (Version None)
Quarter: 2007Q2

REPORT INFORMATION
  Report Type: 
  Country: None (occurrence: None)
  Receive Date: 20070417
  Receipt Date: 20070411
  Transmission Date: 20071010
  Serious: Yes (Life-Threatening)
  Sender: FDA-Public Use
  Company Number: IT-GLAXOSMITHKLINE-B0466505A

PATIENT
  Age: 54 Year
  Sex: Female

DRUGS (3)
  1. AMOXICILLIN + CLAVULANATE POTASSIUM [Suspect]
     Indication: PROPHYLAXIS
     Dosage: 2G PER DAY
     Route: 042
     Dates: start: 20070406, end: 20070406
  2. PROPOFOL [Concomitant]
     Route: 042
     Dates: start: 20070406, end: 20070406
  3. VECURONIUM BROMIDE [Concomitant]
     Route: 042
     Dates: start: 20070406, end: 20070406

REACTIONS (2)
  - BRADYCARDIA [None]
  - HYPOTENSION [None]
